FAERS Safety Report 9020393 (Version 1)
Quarter: 2013Q1

REPORT INFORMATION
  Report Type: Spontaneous
  Country: US (occurrence: US)
  Receive Date: 20130119
  Receipt Date: 20130119
  Transmission Date: 20140127
  Serious: No
  Sender: FDA-Public Use
  Company Number: US-ALLERGAN-1209028US

PATIENT
  Age: 55 Year
  Sex: Female

DRUGS (2)
  1. BOTOX COSMETIC [Suspect]
     Indication: SKIN WRINKLING
     Dosage: 12 UNITS, SINGLE
     Route: 030
     Dates: start: 20120622, end: 20120622
  2. PROZAC [Concomitant]
     Indication: ANXIETY
     Dosage: UNK
     Route: 065

REACTIONS (7)
  - Headache [Unknown]
  - Asthenia [Unknown]
  - Muscular weakness [Unknown]
  - Muscular weakness [Unknown]
  - Speech disorder [Unknown]
  - Nausea [Unknown]
  - Vomiting [Unknown]
